FAERS Safety Report 5712763-3 (Version None)
Quarter: 2008Q2

REPORT INFORMATION
  Report Type: 
  Country: None (occurrence: None)
  Receive Date: 20080422
  Receipt Date: 20080415
  Transmission Date: 20081010
  Serious: Yes (Other)
  Sender: FDA-Public Use
  Company Number: US-JNJFOC-20080301360

PATIENT
  Sex: Male
  Weight: 83.01 kg

DRUGS (1)
  1. ULTRAM ER [Suspect]
     Indication: ARTHRALGIA
     Route: 048

REACTIONS (1)
  - URINARY RETENTION [None]
